FAERS Safety Report 9014726 (Version 2)
Quarter: 2013Q1

REPORT INFORMATION
  Report Type: Spontaneous
  Country: US (occurrence: US)
  Receive Date: 20130115
  Receipt Date: 20130205
  Transmission Date: 20140127
  Serious: Yes (Hospitalization)
  Sender: FDA-Public Use
  Company Number: US-PFIZER INC-2013016544

PATIENT
  Age: 68 Year
  Sex: Female
  Weight: 84.35 kg

DRUGS (4)
  1. LIPITOR [Suspect]
     Indication: BLOOD CHOLESTEROL INCREASED
     Dosage: 40 MG, UNK
     Dates: start: 1999, end: 2011
  2. LIPITOR [Suspect]
     Dosage: 80 MG, UNK
     Dates: start: 2011
  3. LOPRESSOR [Suspect]
     Indication: HEART RATE INCREASED
     Dosage: 100 MG, TWO TIMES A DAY
  4. PLAVIX [Concomitant]
     Indication: ANTICOAGULANT THERAPY
     Dosage: 75 MG, DAILY

REACTIONS (3)
  - Myocardial infarction [Unknown]
  - Stent malfunction [Unknown]
  - Hypotension [Unknown]
